FAERS Safety Report 7599394-8 (Version None)
Quarter: 2011Q3

REPORT INFORMATION
  Report Type: 
  Country: None (occurrence: None)
  Receive Date: 20110711
  Receipt Date: 20081001
  Transmission Date: 20111222
  Serious: Yes (Other)
  Sender: FDA-Public Use
  Company Number: US-BAYER-201039738NA

PATIENT
  Age: 60 Year
  Sex: Male
  Weight: 86 kg

DRUGS (13)
  1. TRASYLOL [Suspect]
     Dosage: 200 ML , LOADING DOSE
     Route: 042
     Dates: start: 20070228, end: 20070228
  2. VANCOMYCIN [Concomitant]
     Dosage: 500 MG, UNK
     Route: 042
     Dates: start: 20070228, end: 20070228
  3. ANCEF [Concomitant]
     Dosage: 1 G, UNK
     Route: 042
     Dates: start: 20070228, end: 20070228
  4. TRASYLOL [Suspect]
     Indication: CORONARY ARTERY BYPASS
     Dosage: 1 ML, TEST DOSE
     Route: 042
     Dates: start: 20070228, end: 20070228
  5. VECURONIUM BROMIDE [Concomitant]
     Dosage: 40 MG, UNK
     Route: 042
     Dates: start: 20070228, end: 20070228
  6. VERSED [Concomitant]
     Dosage: 19 MG, UNK
     Route: 042
     Dates: start: 20070228, end: 20070228
  7. PHENYLEPHRINE HCL [Concomitant]
     Dosage: 35 MG, UNK
     Route: 042
     Dates: start: 20070228, end: 20070228
  8. FENTANYL [Concomitant]
     Dosage: 65.5 ML, UNK
     Route: 042
     Dates: start: 20070228, end: 20070228
  9. DOBUTREX [Concomitant]
     Dosage: 21 MG, UNK
     Route: 042
     Dates: start: 20070228, end: 20070228
  10. INSULIN [Concomitant]
     Dosage: BETWEEN 5 TO 6 UNITS/HOUR
     Route: 042
     Dates: start: 20070228, end: 20070228
  11. RED BLOOD CELLS [Concomitant]
     Dosage: 500 ML, ONCE
     Route: 042
     Dates: start: 20070228
  12. TRASYLOL [Suspect]
     Dosage: 50 ML/HR INFUSION
     Route: 042
     Dates: start: 20070228, end: 20070228
  13. HESPAN IN EXCEL PLASTIC CONTAINER [Concomitant]
     Dosage: 500 ML, ONCE
     Route: 042
     Dates: start: 20070227

REACTIONS (6)
  - RENAL FAILURE [None]
  - INJURY [None]
  - PAIN [None]
  - CEREBROVASCULAR ACCIDENT [None]
  - EMOTIONAL DISTRESS [None]
  - ANXIETY [None]
